FAERS Safety Report 9484971 (Version 1)
Quarter: 2013Q3

REPORT INFORMATION
  Report Type: Spontaneous
  Country: US (occurrence: US)
  Receive Date: 20130828
  Receipt Date: 20130828
  Transmission Date: 20140515
  Serious: No
  Sender: FDA-Public Use
  Company Number: US-ABBOTT-13P-163-1119735-00

PATIENT
  Age: 76 Year
  Sex: Male

DRUGS (3)
  1. ANDROGEL [Suspect]
     Indication: WEIGHT DECREASED
     Route: 061
  2. ANDROGEL [Suspect]
     Indication: MUSCLE BUILDING THERAPY
  3. ANDROGEL [Suspect]
     Indication: BLOOD TESTOSTERONE DECREASED

REACTIONS (3)
  - Off label use [Not Recovered/Not Resolved]
  - Drug ineffective [Not Recovered/Not Resolved]
  - Blood testosterone abnormal [Not Recovered/Not Resolved]
